FAERS Safety Report 13560300 (Version 2)
Quarter: 2017Q2

REPORT INFORMATION
  Report Type: Spontaneous
  Country: IL (occurrence: IL)
  Receive Date: 20170518
  Receipt Date: 20170614
  Transmission Date: 20170830
  Serious: Yes (Other)
  Sender: FDA-Public Use
  Company Number: IL-EISAI MEDICAL RESEARCH-EC-2017-027573

PATIENT
  Age: 64 Year
  Sex: Male
  Weight: 70 kg

DRUGS (8)
  1. VITAMIN D [Concomitant]
     Active Substance: CHOLECALCIFEROL
     Indication: HYPOCALCAEMIA
  2. CALCILESS [Concomitant]
     Indication: HYPOCALCAEMIA
  3. CALCIUM SANDOZ [Concomitant]
     Active Substance: CALCIUM
     Indication: HYPOCALCAEMIA
  4. CALCIUM SANDOZ [Concomitant]
     Active Substance: CALCIUM
     Indication: HYPOPHOSPHATAEMIA
     Route: 048
     Dates: start: 20170205
  5. CALCILESS [Concomitant]
     Indication: HYPOPHOSPHATAEMIA
     Route: 048
     Dates: start: 20170205
  6. VITAMIN D [Concomitant]
     Active Substance: CHOLECALCIFEROL
     Indication: HYPOPHOSPHATAEMIA
     Route: 048
     Dates: start: 20170205
  7. LENVIMA [Suspect]
     Active Substance: LENVATINIB
     Indication: METASTATIC RENAL CELL CARCINOMA
     Route: 048
     Dates: start: 20161013, end: 20170501
  8. EVEROLIMUS [Suspect]
     Active Substance: EVEROLIMUS
     Indication: METASTATIC RENAL CELL CARCINOMA
     Route: 048
     Dates: start: 20161013, end: 20170501

REACTIONS (5)
  - Malignant neoplasm progression [Unknown]
  - Fatigue [Not Recovered/Not Resolved]
  - Weight decreased [Not Recovered/Not Resolved]
  - Abdominal pain [Not Recovered/Not Resolved]
  - Decreased appetite [Not Recovered/Not Resolved]

NARRATIVE: CASE EVENT DATE: 201704
